FAERS Safety Report 4709185-0 (Version None)
Quarter: 2005Q2

REPORT INFORMATION
  Report Type: 
  Country: None (occurrence: None)
  Receive Date: 20050629
  Receipt Date: 20050616
  Transmission Date: 20051028
  Serious: Yes (Hospitalization)
  Sender: FDA-Public Use
  Company Number: THYM-10588

PATIENT
  Age: 54 Year
  Sex: Female
  Weight: 62.6 kg

DRUGS (5)
  1. THYMOGLOBULIN [Suspect]
     Indication: RENAL TRANSPLANT
     Dosage: 100 MG QD IV
     Route: 042
     Dates: start: 20050602, end: 20050606
  2. PROGRAF [Concomitant]
  3. MYCOPHENOLATE MOFETIL [Concomitant]
  4. PREDNISONE [Concomitant]
  5. RAPAMUNE [Concomitant]

REACTIONS (3)
  - ABDOMINAL PAIN [None]
  - IMPLANT SITE EFFUSION [None]
  - PERINEPHRIC EFFUSION [None]
